FAERS Safety Report 21995070 (Version 1)
Quarter: 2023Q1

REPORT INFORMATION
  Report Type: Spontaneous
  Country: CN (occurrence: CN)
  Receive Date: 20230215
  Receipt Date: 20230215
  Transmission Date: 20230418
  Serious: Yes (Life-Threatening, Hospitalization, Other)
  Sender: FDA-Public Use
  Company Number: CN-PFIZER INC-PV202300027673

PATIENT
  Age: 75 Year
  Sex: Male
  Weight: 55 kg

DRUGS (4)
  1. NIRMATRELVIR\RITONAVIR [Suspect]
     Active Substance: NIRMATRELVIR\RITONAVIR
     Indication: COVID-19 treatment
     Dosage: [PF-07321332 300 MG]/[RITONAVIR 100 MG]; 2X/DAY
     Route: 048
     Dates: start: 20230117, end: 20230119
  2. RO-0622 [Concomitant]
     Active Substance: RO-0622
     Indication: Antiviral treatment
     Dosage: 5 MG, 1X/DAY
     Route: 048
     Dates: start: 20230115, end: 20230117
  3. RO-0622 [Concomitant]
     Active Substance: RO-0622
     Indication: Pneumonia
  4. RO-0622 [Concomitant]
     Active Substance: RO-0622
     Indication: COVID-19

REACTIONS (1)
  - Acute kidney injury [Not Recovered/Not Resolved]

NARRATIVE: CASE EVENT DATE: 20230119
